FAERS Safety Report 7904868-3 (Version None)
Quarter: 2011Q4

REPORT INFORMATION
  Report Type: 
  Country: None (occurrence: None)
  Receive Date: 20111109
  Receipt Date: 20111101
  Transmission Date: 20120403
  Serious: Yes (Hospitalization)
  Sender: FDA-Public Use
  Company Number: KR-ASTRAZENECA-2011SE65948

PATIENT
  Age: 21628 Day
  Sex: Female

DRUGS (8)
  1. NORVASC [Concomitant]
     Route: 048
     Dates: start: 20021128
  2. CEFAZOLIN [Concomitant]
     Route: 042
     Dates: start: 20050222, end: 20050222
  3. TRIDOL [Concomitant]
     Route: 048
     Dates: start: 20050224, end: 20050224
  4. CRESTOR [Suspect]
     Indication: HYPERCHOLESTEROLAEMIA
     Route: 048
     Dates: start: 20041213
  5. MACPERAN [Concomitant]
     Route: 030
     Dates: start: 20050225, end: 20050225
  6. RHONAL BABY [Concomitant]
     Route: 048
     Dates: start: 20040616
  7. IMDUR SR [Concomitant]
     Route: 048
     Dates: start: 20021128
  8. ISEPACIN [Concomitant]
     Route: 042
     Dates: start: 20050222, end: 20050222

REACTIONS (2)
  - MUSCULOSKELETAL CHEST PAIN [None]
  - SWELLING [None]
